FAERS Safety Report 5389354-X (Version None)
Quarter: 2007Q3

REPORT INFORMATION
  Report Type: 
  Country: None (occurrence: None)
  Receive Date: 20070713
  Receipt Date: 20070713
  Transmission Date: 20080115
  Serious: Yes (Life-Threatening, Hospitalization, Other)
  Sender: FDA-Public Use
  Company Number: None

PATIENT
  Age: 76 Year
  Sex: Male
  Weight: 98.8842 kg

DRUGS (18)
  1. JANUVIA [Suspect]
     Indication: DIABETES MELLITUS INADEQUATE CONTROL
     Dosage: 50 MG DAILY PO
     Route: 048
     Dates: start: 20061120, end: 20061204
  2. JANUVIA [Suspect]
     Indication: TYPE 2 DIABETES MELLITUS
     Dosage: 50 MG DAILY PO
     Route: 048
     Dates: start: 20061120, end: 20061204
  3. JANUVIA [Suspect]
     Indication: DIABETES MELLITUS INADEQUATE CONTROL
     Dosage: 100 MG DAILY PO
     Route: 048
     Dates: start: 20061205, end: 20061226
  4. JANUVIA [Suspect]
     Indication: TYPE 2 DIABETES MELLITUS
     Dosage: 100 MG DAILY PO
     Route: 048
     Dates: start: 20061205, end: 20061226
  5. OLMESARTAN MEDOXOMIL [Concomitant]
  6. CARVEDILOL [Concomitant]
  7. CLOPIDOGREL [Concomitant]
  8. BUMETANIDE [Concomitant]
  9. SIMVASTATIN [Concomitant]
  10. POTASSIUM CHLORIDE [Concomitant]
  11. METOLAZONE [Concomitant]
  12. GLIPIZIDE [Concomitant]
  13. LEVOTHYROXINE SODIUM [Concomitant]
  14. AMIODARONE HCL [Concomitant]
  15. HUMULIN 70/30 [Concomitant]
  16. TERAZOSIN HCL [Concomitant]
  17. ASPIRIN [Concomitant]
  18. EZETIMIBE [Concomitant]

REACTIONS (6)
  - BLOOD POTASSIUM INCREASED [None]
  - DECREASED APPETITE [None]
  - DIABETES MELLITUS INADEQUATE CONTROL [None]
  - HAEMATURIA [None]
  - RENAL FAILURE ACUTE [None]
  - RHABDOMYOLYSIS [None]
